FAERS Safety Report 13613895 (Version 1)
Quarter: 2017Q2

REPORT INFORMATION
  Report Type: Spontaneous
  Country: US (occurrence: US)
  Receive Date: 20170606
  Receipt Date: 20170606
  Transmission Date: 20170830
  Serious: No
  Sender: FDA-Public Use
  Company Number: US-TEVA-717381ACC

PATIENT
  Age: 27 Year
  Sex: Female
  Weight: 57.2 kg

DRUGS (1)
  1. MINOXIDIL TOPICAL SOLUTION MN [Suspect]
     Active Substance: MINOXIDIL
     Indication: ALOPECIA
     Route: 061
     Dates: start: 201607, end: 201608

REACTIONS (4)
  - Off label use [None]
  - Condition aggravated [None]
  - Drug ineffective [Unknown]
  - Alopecia [Not Recovered/Not Resolved]

NARRATIVE: CASE EVENT DATE: 201609
